FAERS Safety Report 16493664 (Version 1)
Quarter: 2019Q2

REPORT INFORMATION
  Report Type: Spontaneous
  Country: NL (occurrence: NL)
  Receive Date: 20190628
  Receipt Date: 20190628
  Transmission Date: 20190711
  Serious: Yes (Hospitalization)
  Sender: FDA-Public Use
  Company Number: NL-TEVA-2019-NL-1070685

PATIENT
  Age: 45 Year
  Sex: Male

DRUGS (4)
  1. KALIUMCHLORIDE 600 MG MGA [Concomitant]
     Dosage: 2 TIMES A DAY 1 TABLET
  2. PARACETAMOL 500 MG TABLET [Concomitant]
     Dosage: IF NECESSARY 4 TIMES A DAY 2 PIECE
  3. MOVICOLON POEDER VOOR DRANK IN SACHET [Concomitant]
     Dosage: IF NECESSARY 1 PIECE ONCE A DAY
  4. CAPECITABINE FILMOMHULDE TABLET, 500 MG (MILLIGRAM) [Suspect]
     Active Substance: CAPECITABINE
     Indication: LUNG NEOPLASM MALIGNANT
     Dosage: 2 TIMES A DAY 1650 MG
     Dates: start: 20180301, end: 20180319

REACTIONS (1)
  - Arteriospasm coronary [Recovered/Resolved]

NARRATIVE: CASE EVENT DATE: 20180315
